FAERS Safety Report 16702128 (Version 1)
Quarter: 2019Q3

REPORT INFORMATION
  Report Type: Spontaneous
  Country: FR (occurrence: FR)
  Receive Date: 20190813
  Receipt Date: 20190813
  Transmission Date: 20191004
  Serious: Yes (Disabling)
  Sender: FDA-Public Use
  Company Number: None

PATIENT
  Age: 28 Year
  Sex: Female
  Weight: 52 kg

DRUGS (1)
  1. BETAMETASONE [Suspect]
     Active Substance: BETAMETHASONE
     Indication: ECZEMA
     Route: 061
     Dates: start: 20180721, end: 20190605

REACTIONS (5)
  - Dry skin [None]
  - Swelling [None]
  - Pruritus [None]
  - Insomnia [None]
  - Withdrawal syndrome [None]

NARRATIVE: CASE EVENT DATE: 20190605
